FAERS Safety Report 9848104 (Version 1)
Quarter: 2014Q1

REPORT INFORMATION
  Report Type: Spontaneous
  Country: US (occurrence: None)
  Receive Date: 20140127
  Receipt Date: 20140127
  Transmission Date: 20141002
  Serious: Yes (Other)
  Sender: FDA-Public Use
  Company Number: None

PATIENT
  Age: 33 None
  Sex: Male
  Weight: 64.86 kg

DRUGS (8)
  1. METHADONE [Concomitant]
  2. CLOTRIMAZOLE [Concomitant]
  3. NICOTROL INHALER [Concomitant]
  4. MINDAS [Concomitant]
  5. NYSTATIN [Suspect]
     Indication: FUNGAL SKIN INFECTION
     Dosage: 100,000 USP UNITS PER GRAM ?50GRAMS?TWICE DAILY?APPLY TO SKIN ?
     Route: 061
     Dates: start: 20140110, end: 20140110
  6. WELLBUTRIN SR [Concomitant]
  7. REMERON [Concomitant]
  8. CLONAZEPAM [Suspect]

REACTIONS (2)
  - Application site pain [None]
  - Condition aggravated [None]
